FAERS Safety Report 24573907 (Version 1)
Quarter: 2024Q4

REPORT INFORMATION
  Report Type: Spontaneous
  Country: US (occurrence: US)
  Receive Date: 20241104
  Receipt Date: 20241104
  Transmission Date: 20250114
  Serious: No
  Sender: ROCHE
  Company Number: US-ROCHE-10000115918

PATIENT
  Age: 61 Year
  Sex: Male

DRUGS (2)
  1. ZELBORAF [Suspect]
     Active Substance: VEMURAFENIB
     Indication: Malignant melanoma
     Dosage: 3 TABLETS BY  MOUTH 2 TIMES A DAY FOR EVERY 28 DAYS.
     Route: 048
     Dates: start: 202406
  2. COTELLIC [Concomitant]
     Active Substance: COBIMETINIB
     Dosage: 3 TABLETS BY  MOUTH 1 TIMES A DAY FOR EVERY 21 DAYS, THEN OFF FOR 7 DAYS.
     Route: 048

REACTIONS (2)
  - Contusion [Unknown]
  - Haemorrhage [Unknown]
